FAERS Safety Report 9697232 (Version 3)
Quarter: 2013Q4

REPORT INFORMATION
  Report Type: Spontaneous
  Country: FR (occurrence: FR)
  Receive Date: 20131120
  Receipt Date: 20131129
  Transmission Date: 20140711
  Serious: Yes (Other)
  Sender: FDA-Public Use
  Company Number: FR-JNJFOC-20131109843

PATIENT
  Age: 23 Year
  Sex: Female

DRUGS (8)
  1. SIMPONI [Suspect]
     Indication: PRODUCT USED FOR UNKNOWN INDICATION
     Route: 058
     Dates: start: 20130521
  2. SIMPONI [Suspect]
     Indication: PRODUCT USED FOR UNKNOWN INDICATION
     Dosage: DELAYED OF 10 DAYS
     Route: 058
     Dates: start: 20131114
  3. UVEDOSE [Concomitant]
     Indication: VITAMIN SUPPLEMENTATION
     Dosage: 1 AMPOULE EVERY 3 MONTHS
     Route: 048
     Dates: start: 20130521
  4. TRAMADOL [Concomitant]
     Route: 065
  5. VITAMIN D [Concomitant]
     Route: 065
  6. FELDENE [Concomitant]
     Indication: PAIN
     Route: 048
     Dates: start: 20130521
  7. IXPRIM [Concomitant]
     Indication: PAIN
     Dosage: 1 TO 2 TABLETS ORAL EVERY 6 HOURS IN CASE
     Route: 048
     Dates: start: 20130521
  8. PARACETAMOL [Concomitant]
     Route: 065

REACTIONS (1)
  - Pyelonephritis acute [Unknown]
